FAERS Safety Report 18583454 (Version 1)
Quarter: 2020Q4

REPORT INFORMATION
  Report Type: Spontaneous
  Country: US (occurrence: US)
  Receive Date: 20201206
  Receipt Date: 20201206
  Transmission Date: 20210114
  Serious: No
  Sender: FDA-Public Use
  Company Number: US-AMGEN-USA-20200506538

PATIENT
  Age: 54 Year
  Sex: Female

DRUGS (5)
  1. BIOTIN [Concomitant]
     Active Substance: BIOTIN
     Dosage: UNK
     Route: 065
     Dates: start: 20190326
  2. ZINC. [Concomitant]
     Active Substance: ZINC
     Dosage: 30 MILLIGRAM
     Route: 048
     Dates: start: 20190326
  3. SPIRONOLACTON [Concomitant]
     Active Substance: SPIRONOLACTONE
     Dosage: 50 MILLIGRAM
     Route: 048
     Dates: start: 20191223
  4. MOMETASONE [Concomitant]
     Active Substance: MOMETASONE
  5. OTEZLA [Suspect]
     Active Substance: APREMILAST
     Indication: PSORIASIS
     Dosage: 30 MILLIGRAM, BID
     Route: 048
     Dates: start: 20180919

REACTIONS (1)
  - Psoriasis [Not Recovered/Not Resolved]
